FAERS Safety Report 8836992 (Version 2)
Quarter: 2014Q1

REPORT INFORMATION
  Report Type: Report from Study
  Country: JP (occurrence: JP)
  Receive Date: 20121012
  Receipt Date: 20140311
  Transmission Date: 20141002
  Serious: Yes (Other)
  Sender: FDA-Public Use
  Company Number: JP-VERTEX PHARMACEUTICAL INC.-AE-2012-002370

PATIENT
  Age: 63 Year
  Sex: Male

DRUGS (19)
  1. VX-950 (TELAPREVIR) [Suspect]
     Indication: CHRONIC HEPATITIS C
     Dosage: 2250 MG, QD
     Route: 048
     Dates: start: 20120210, end: 20120212
  2. VX-950 (TELAPREVIR) [Suspect]
     Dosage: 1500 MG, QD
     Route: 048
     Dates: start: 20120213, end: 20120213
  3. VX-950 (TELAPREVIR) [Suspect]
     Dosage: 750 MG, QD
     Route: 048
     Dates: start: 20120305, end: 20120507
  4. PEGINTRON [Suspect]
     Indication: CHRONIC HEPATITIS C
     Dosage: 1.5 ?G/KG, QW
     Route: 058
     Dates: start: 20120210
  5. REBETOL [Suspect]
     Indication: CHRONIC HEPATITIS C
     Dosage: 600 MG, QD
     Route: 048
     Dates: start: 20120210, end: 20120213
  6. REBETOL [Suspect]
     Dosage: 600 MG, QD
     Route: 048
     Dates: start: 20120227, end: 20120318
  7. REBETOL [Suspect]
     Dosage: 400 MG, QD
     Route: 048
     Dates: start: 20120319, end: 20120416
  8. REBETOL [Suspect]
     Dosage: 600 MG, QD
     Route: 048
     Dates: start: 20120417, end: 20120521
  9. REBETOL [Suspect]
     Dosage: 400 MG, QD
     Route: 048
     Dates: start: 20120522, end: 20120528
  10. REBETOL [Suspect]
     Dosage: 200 MG, QD
     Route: 048
     Dates: start: 20120604, end: 20120610
  11. REBETOL [Suspect]
     Dosage: 400 MG, QD
     Route: 048
     Dates: start: 20120611, end: 20120617
  12. REBETOL [Suspect]
     Dosage: 600 MG, QD
     Route: 048
     Dates: start: 20120618
  13. URSO [Concomitant]
     Dosage: 600 MG, QD
     Route: 048
     Dates: end: 20120603
  14. URSO [Concomitant]
     Dosage: 300 MG, QD
     Route: 048
     Dates: start: 20120611, end: 20120729
  15. LEBARAMIN [Concomitant]
     Dosage: 300 MG, QD
     Route: 048
     Dates: end: 20120226
  16. FERROMIA [Concomitant]
     Dosage: 100 MG, QD
     Route: 048
  17. DERMOVATE [Concomitant]
     Dosage: UNK, PRN
     Route: 061
     Dates: start: 20120212
  18. PROHEPARUM [Concomitant]
     Dosage: 6 DF, QD
     Route: 048
     Dates: start: 20120227, end: 20120603
  19. PROHEPARUM [Concomitant]
     Dosage: 3 DF, QD
     Route: 048
     Dates: start: 20120611, end: 20120729

REACTIONS (4)
  - Dehydration [Recovering/Resolving]
  - Decreased appetite [Recovering/Resolving]
  - Renal failure [Recovered/Resolved]
  - Haemoglobin decreased [Not Recovered/Not Resolved]
